FAERS Safety Report 9369460 (Version 1)
Quarter: 2013Q2

REPORT INFORMATION
  Report Type: Spontaneous
  Country: TR (occurrence: TR)
  Receive Date: 20130626
  Receipt Date: 20130626
  Transmission Date: 20140414
  Serious: Yes (Other)
  Sender: FDA-Public Use
  Company Number: PHHY2013TR063866

PATIENT
  Age: 49 Year
  Sex: Male

DRUGS (1)
  1. DICLOFENAC [Suspect]
     Route: 030

REACTIONS (10)
  - Kounis syndrome [Unknown]
  - Cardiac arrest [Unknown]
  - Acute myocardial infarction [Unknown]
  - Ventricular fibrillation [Unknown]
  - Loss of consciousness [Unknown]
  - Pulmonary oedema [Unknown]
  - Blood pressure decreased [Unknown]
  - Blood immunoglobulin E increased [Unknown]
  - Cardiac enzymes increased [Unknown]
  - Coronary artery occlusion [Unknown]
